FAERS Safety Report 9115334 (Version 1)
Quarter: 2013Q1

REPORT INFORMATION
  Report Type: Spontaneous
  Country: US (occurrence: None)
  Receive Date: 20130221
  Receipt Date: 20130221
  Transmission Date: 20140127
  Serious: Yes (Life-Threatening)
  Sender: FDA-Public Use
  Company Number: None

PATIENT
  Sex: Female
  Weight: 43.09 kg

DRUGS (5)
  1. SAVELLA [Suspect]
     Indication: FIBROMYALGIA
     Route: 048
     Dates: start: 20130204, end: 20130206
  2. OXYCODONE 30MG [Concomitant]
  3. ESTRADIOL 4MG [Concomitant]
  4. AMBIEN 10MG [Concomitant]
  5. PANTOPRAZOLE SOD 20MG [Suspect]

REACTIONS (1)
  - Blood pressure increased [None]
